FAERS Safety Report 4441286-7 (Version None)
Quarter: 2004Q3

REPORT INFORMATION
  Report Type: 
  Country: None (occurrence: None)
  Receive Date: 20040728
  Receipt Date: 20040329
  Transmission Date: 20050211
  Serious: No
  Sender: FDA-Public Use
  Company Number: USA040363470

PATIENT
  Age: 46 Year
  Sex: Female
  Weight: 89 kg

DRUGS (4)
  1. STRATTERA [Suspect]
     Indication: ATTENTION DEFICIT/HYPERACTIVITY DISORDER
     Dosage: 60 MG DAY
     Dates: start: 20040315
  2. LIPITOR [Concomitant]
  3. ESTRADIOL [Concomitant]
  4. PROMETRIUM [Concomitant]

REACTIONS (4)
  - CHILLS [None]
  - FEELING ABNORMAL [None]
  - FEELING JITTERY [None]
  - FORMICATION [None]
